FAERS Safety Report 9563761 (Version 1)
Quarter: 2013Q3

REPORT INFORMATION
  Report Type: Spontaneous
  Country: US (occurrence: None)
  Receive Date: 20130926
  Receipt Date: 20130926
  Transmission Date: 20140515
  Serious: Yes (Hospitalization)
  Sender: FDA-Public Use
  Company Number: AE13-074 - 15 DAY

PATIENT
  Age: 20 Year
  Sex: Female

DRUGS (5)
  1. HYDROCODONE/ACETAMINOPHEN [Suspect]
     Indication: PAIN
     Route: 048
     Dates: end: 2013
  2. GABAPENTIN [Concomitant]
  3. SUDAFED [Concomitant]
  4. ABILIFY [Concomitant]
  5. PROPRANOLOL [Concomitant]

REACTIONS (1)
  - Hepatitis [None]
